FAERS Safety Report 7910097-X (Version None)
Quarter: 2011Q4

REPORT INFORMATION
  Report Type: 
  Country: None (occurrence: None)
  Receive Date: 20111111
  Receipt Date: 20111031
  Transmission Date: 20120403
  Serious: Yes (Hospitalization)
  Sender: FDA-Public Use
  Company Number: BR-BRISTOL-MYERS SQUIBB COMPANY-16206039

PATIENT
  Age: 54 Year
  Sex: Female

DRUGS (2)
  1. WARFARIN SODIUM [Suspect]
  2. PHENYTOIN [Interacting]
     Indication: METASTASES TO CENTRAL NERVOUS SYSTEM

REACTIONS (2)
  - DRUG INTERACTION [None]
  - DEEP VEIN THROMBOSIS [None]
